FAERS Safety Report 19487071 (Version 2)
Quarter: 2021Q3

REPORT INFORMATION
  Report Type: Spontaneous
  Country: US (occurrence: US)
  Receive Date: 20210702
  Receipt Date: 20210712
  Transmission Date: 20211014
  Serious: Yes (Life-Threatening, Hospitalization, Other)
  Sender: FDA-Public Use
  Company Number: US-009507513-2107USA000355

PATIENT
  Age: 65 Year
  Sex: Male

DRUGS (6)
  1. CUBICIN [Suspect]
     Active Substance: DAPTOMYCIN
     Indication: ARTHRITIS
  2. CUBICIN [Suspect]
     Active Substance: DAPTOMYCIN
     Indication: STAPHYLOCOCCAL SEPSIS
     Dosage: UNK
  3. CUBICIN [Suspect]
     Active Substance: DAPTOMYCIN
     Indication: STAPHYLOCOCCAL BACTERAEMIA
  4. CEFTAROLINE [Concomitant]
     Active Substance: CEFTAROLINE
     Indication: STAPHYLOCOCCAL SEPSIS
     Dosage: UNKNOWN; MAINTENANCE THERAPY
  5. CEFTAROLINE [Concomitant]
     Active Substance: CEFTAROLINE
     Indication: ARTHRITIS
  6. CEFTAROLINE [Concomitant]
     Active Substance: CEFTAROLINE
     Indication: STAPHYLOCOCCAL BACTERAEMIA

REACTIONS (1)
  - Eosinophilic pneumonia acute [Recovering/Resolving]
